FAERS Safety Report 8051102-2 (Version None)
Quarter: 2012Q1

REPORT INFORMATION
  Report Type: 
  Country: None (occurrence: None)
  Receive Date: 20120117
  Receipt Date: 20120112
  Transmission Date: 20120608
  Serious: Yes (Death)
  Sender: FDA-Public Use
  Company Number: PHEH2011US012439

PATIENT
  Sex: Female

DRUGS (17)
  1. ERLOTINIB HYDROCHLORIDE [Suspect]
     Dosage: 150 MG, UNK
     Route: 048
  2. TARCEVA [Concomitant]
     Dosage: 150 MG, UNK
     Route: 048
  3. KEPPRA [Concomitant]
     Dosage: UNK UKN, UNK
  4. LAPATINIB [Suspect]
     Dosage: 250 MG, UNK
     Route: 048
     Dates: start: 20110701, end: 20110901
  5. TYKERB [Concomitant]
     Dosage: 250 MG, UNK
     Route: 048
     Dates: start: 20110701, end: 20110901
  6. ALBUTEROL SULFATE AUTOHALER [Concomitant]
  7. LEVETIRACETAM [Concomitant]
  8. DOCUSATE [Concomitant]
  9. AFINITOR [Suspect]
     Dosage: 1 DF, QD
     Route: 048
  10. CAPECITABINE [Suspect]
     Dosage: UNK UKN, UNK
     Dates: start: 20110701, end: 20110901
  11. XELODA [Concomitant]
     Dosage: UNK UKN, UNK
     Dates: start: 20110701, end: 20110901
  12. DOCUSATE CALCIUM [Concomitant]
     Dosage: UNK UKN, UNK
  13. DEXAMETHASONE TAB [Concomitant]
     Dosage: UNK UKN, UNK
  14. MEGACE [Concomitant]
     Dosage: UNK UKN, UNK
  15. ALBUTEROL [Concomitant]
     Dosage: UNK UKN, UNK
  16. OXYCODONE HCL [Concomitant]
  17. OXYCONTIN [Concomitant]
     Dosage: UNK UKN, UNK

REACTIONS (1)
  - DEATH [None]
